FAERS Safety Report 8186458 (Version 5)
Quarter: 2013Q1

REPORT INFORMATION
  Report Type: Spontaneous
  Country: FR (occurrence: FR)
  Receive Date: 20111018
  Receipt Date: 20130221
  Transmission Date: 20140127
  Serious: Yes (Other)
  Sender: FDA-Public Use
  Company Number: FR-ABBOTT-11P-056-0863752-00

PATIENT
  Age: 64 Year
  Sex: Female
  Weight: 112 kg

DRUGS (11)
  1. HUMIRA 40 MG/ 0.8 ML PRE-FILLED SYRINGE [Suspect]
     Indication: SPONDYLITIS
     Route: 058
     Dates: start: 201011, end: 20110127
  2. LEVOTHYROXIN [Concomitant]
     Indication: THYROIDECTOMY
     Route: 048
  3. METFORMINE [Concomitant]
     Indication: PRODUCT USED FOR UNKNOWN INDICATION
     Dosage: 1000 MG TWICE/DAY + 500 MG ONCE/DAY
     Route: 048
  4. ALLOPURINOL [Concomitant]
     Indication: PRODUCT USED FOR UNKNOWN INDICATION
  5. LANSOPRAZOLE [Concomitant]
     Indication: PRODUCT USED FOR UNKNOWN INDICATION
     Dosage: 15 MG DAILY
     Route: 048
  6. PRAVASTATINE [Concomitant]
     Indication: PRODUCT USED FOR UNKNOWN INDICATION
     Route: 048
  7. BISOPROLOL [Concomitant]
     Indication: PRODUCT USED FOR UNKNOWN INDICATION
     Route: 048
  8. RILMENIDINE [Concomitant]
     Indication: PRODUCT USED FOR UNKNOWN INDICATION
     Route: 048
  9. EURELIX [Concomitant]
     Indication: PRODUCT USED FOR UNKNOWN INDICATION
     Route: 048
  10. XPRIM (TRAMADOL/PARACETAMOL) [Concomitant]
     Indication: PRODUCT USED FOR UNKNOWN INDICATION
     Dosage: TWO TO THREE TIMES PER DAY
  11. UVEDOSE [Concomitant]
     Indication: PRODUCT USED FOR UNKNOWN INDICATION
     Dosage: EACH QUARTER

REACTIONS (9)
  - Deep vein thrombosis [Recovering/Resolving]
  - Circulating anticoagulant positive [Unknown]
  - Inflammation [Unknown]
  - Unevaluable event [Unknown]
  - International normalised ratio fluctuation [Unknown]
  - Arthralgia [Unknown]
  - Ankylosing spondylitis [Unknown]
  - Ankylosing spondylitis [Unknown]
  - Ankylosing spondylitis [Unknown]
